FAERS Safety Report 8909608 (Version 2)
Quarter: 2012Q4

REPORT INFORMATION
  Report Type: 
  Country: US (occurrence: US)
  Receive Date: 20121114
  Receipt Date: 20121217
  Transmission Date: 20130627
  Serious: Yes (Hospitalization)
  Sender: FDA-Public Use
  Company Number: US-AMGEN-USASP2012072404

PATIENT
  Age: 58 Year
  Sex: Male

DRUGS (14)
  1. ENBREL [Suspect]
     Indication: PSORIASIS
     Dosage: 50 mg, qwk
     Route: 058
     Dates: start: 20110324
  2. LANTUS [Concomitant]
     Dosage: UNK
  3. PLAVIX [Concomitant]
     Dosage: UNK
  4. ADVAIR [Concomitant]
     Dosage: UNK
  5. GLIMEPIRIDE [Concomitant]
     Dosage: UNK
  6. TORSEMIDE [Concomitant]
     Dosage: UNK
  7. CARVEDILOL [Concomitant]
     Dosage: UNK
  8. AMLODIPINE [Concomitant]
     Dosage: UNK
  9. HYDRALAZINE [Concomitant]
     Dosage: UNK
  10. ROPINIROLE [Concomitant]
     Dosage: UNK
  11. PHOSLO [Concomitant]
     Dosage: UNK
  12. CITALOPRAM [Concomitant]
     Dosage: UNK
  13. SIMVASTATIN [Concomitant]
     Dosage: UNK
  14. NEURONTIN [Concomitant]
     Dosage: UNK

REACTIONS (7)
  - Peripheral vascular disorder [Recovered/Resolved]
  - Dehydration [Recovered/Resolved]
  - Renal impairment [Recovered/Resolved]
  - Oedema peripheral [Recovered/Resolved]
  - Joint swelling [Recovered/Resolved]
  - Hypermobility syndrome [Recovered/Resolved]
  - Balance disorder [Not Recovered/Not Resolved]
